FAERS Safety Report 6893270-1 (Version None)
Quarter: 2010Q3

REPORT INFORMATION
  Report Type: 
  Country: None (occurrence: None)
  Receive Date: 20100731
  Receipt Date: 20090730
  Transmission Date: 20110219
  Serious: No
  Sender: FDA-Public Use
  Company Number: US-PFIZER INC-2009229678

PATIENT
  Sex: Female

DRUGS (5)
  1. NORVASC [Suspect]
     Dosage: 10 MG, UNK
  2. VALSARTAN [Concomitant]
  3. AMLODIPINE BESYLATE/VALSARTAN [Concomitant]
  4. CLONIDINE [Concomitant]
  5. BENICAR [Concomitant]

REACTIONS (1)
  - JOINT SWELLING [None]
